FAERS Safety Report 10178248 (Version 2)
Quarter: 2014Q2

REPORT INFORMATION
  Report Type: Spontaneous
  Country: BR (occurrence: BR)
  Receive Date: 20140519
  Receipt Date: 20140613
  Transmission Date: 20141212
  Serious: Yes (Other)
  Sender: FDA-Public Use
  Company Number: PHHY2014BR059638

PATIENT
  Sex: Male
  Weight: 2.4 kg

DRUGS (1)
  1. EXJADE [Suspect]
     Dosage: MATERNAL DOSE: 500MG AND 250MG ORALLY
     Route: 064

REACTIONS (2)
  - Premature baby [Unknown]
  - Foetal exposure during pregnancy [Unknown]
